FAERS Safety Report 6701922-9 (Version None)
Quarter: 2010Q2

REPORT INFORMATION
  Report Type: 
  Country: None (occurrence: None)
  Receive Date: 20100429
  Receipt Date: 20100419
  Transmission Date: 20101027
  Serious: Yes (Other)
  Sender: FDA-Public Use
  Company Number: CO-PFIZER INC-2010049870

PATIENT
  Age: 46 Year
  Sex: Female

DRUGS (1)
  1. DOSTINEX [Suspect]
     Indication: MENSTRUAL CYCLE MANAGEMENT
     Dosage: 0.25 MG, WEEKLY
     Route: 048
     Dates: start: 20000101

REACTIONS (4)
  - ABDOMINAL PAIN UPPER [None]
  - HEADACHE [None]
  - PRESYNCOPE [None]
  - TACHYCARDIA [None]
